FAERS Safety Report 18103206 (Version 1)
Quarter: 2020Q3

REPORT INFORMATION
  Report Type: Spontaneous
  Country: US (occurrence: US)
  Receive Date: 20200802
  Receipt Date: 20200802
  Transmission Date: 20201103
  Serious: No
  Sender: FDA-Public Use
  Company Number: None

PATIENT
  Age: 46 Year
  Sex: Female
  Weight: 110.5 kg

DRUGS (13)
  1. KLOR?CON 50MG CR TAB [Concomitant]
     Dates: start: 20200524, end: 20200531
  2. SALINE NASAL SPRAY [Concomitant]
     Active Substance: SODIUM CHLORIDE
     Dates: start: 20200529, end: 20200605
  3. ACETAMINOPHEN 1000MG TAB [Concomitant]
     Dates: start: 20200525, end: 20200605
  4. ENOXAPARIN 40MG SYR [Concomitant]
     Dates: start: 20200524, end: 20200529
  5. CETIRIZINE 10MG TAB [Concomitant]
     Dates: start: 20200530, end: 20200601
  6. FAMOTIDINE 20MG TAB [Concomitant]
     Dates: start: 20200525, end: 20200605
  7. MELATONIN 3MG TAB [Concomitant]
     Dates: start: 20200527, end: 20200605
  8. LORAZEPAM 0.25MG TAB [Concomitant]
     Dates: start: 20200530, end: 20200605
  9. PROVENTIL HFA [Concomitant]
     Active Substance: ALBUTEROL SULFATE
     Dates: start: 20200529, end: 20200605
  10. REMDESIVIR. [Suspect]
     Active Substance: REMDESIVIR
     Indication: COVID-19
     Dosage: ?          OTHER FREQUENCY:X1;?
     Route: 041
     Dates: start: 20200529, end: 20200530
  11. ENOXAPARIN 60MG SYR [Concomitant]
     Dates: start: 20200529, end: 20200605
  12. FUROSEMIDE INJ [Concomitant]
     Dates: start: 20200524, end: 20200601
  13. ONDANSETRON 4MG INJ [Concomitant]
     Dates: start: 20200524, end: 20200605

REACTIONS (6)
  - Dizziness [None]
  - Aspartate aminotransferase increased [None]
  - Hypoaesthesia [None]
  - Therapy interrupted [None]
  - Alanine aminotransferase increased [None]
  - Condition aggravated [None]

NARRATIVE: CASE EVENT DATE: 20200729
